FAERS Safety Report 7407655-8 (Version None)
Quarter: 2011Q2

REPORT INFORMATION
  Report Type: 
  Country: None (occurrence: None)
  Receive Date: 20110405
  Receipt Date: 20110321
  Transmission Date: 20111010
  Serious: Yes (Other)
  Sender: FDA-Public Use
  Company Number: AUR-APL-2011-01046

PATIENT
  Age: 68 Year

DRUGS (2)
  1. CALFOVIT D3 [Concomitant]
  2. ALENDRONATE SODIUM [Suspect]
     Indication: OSTEOPOROSIS
     Dosage: 70MG-WEEKLY-ORAL
     Route: 048
     Dates: start: 20100917

REACTIONS (2)
  - ALOPECIA [None]
  - EMOTIONAL DISTRESS [None]
